FAERS Safety Report 14876975 (Version 1)
Quarter: 2018Q2

REPORT INFORMATION
  Report Type: Report from Study
  Country: PH (occurrence: PH)
  Receive Date: 20180510
  Receipt Date: 20180510
  Transmission Date: 20180711
  Serious: Yes (Life-Threatening, Other)
  Sender: FDA-Public Use
  Company Number: PH-OTSUKA-2018_010950

PATIENT
  Sex: Female

DRUGS (2)
  1. ARIPIPRAZOLE. [Suspect]
     Active Substance: ARIPIPRAZOLE
     Indication: AFFECTIVE DISORDER
     Dosage: 5 MG, UNK
     Route: 065
  2. ARIPIPRAZOLE. [Suspect]
     Active Substance: ARIPIPRAZOLE
     Dosage: 2.5 MG, QD
     Route: 065
     Dates: start: 20180301, end: 20180303

REACTIONS (6)
  - Abnormal behaviour [Recovered/Resolved]
  - Insomnia [Recovered/Resolved]
  - Irritability [Recovered/Resolved]
  - Suicidal ideation [Recovered/Resolved]
  - Therapy cessation [Unknown]
  - Product use in unapproved indication [Unknown]
